FAERS Safety Report 8288151-5 (Version None)
Quarter: 2012Q2

REPORT INFORMATION
  Report Type: 
  Country: None (occurrence: None)
  Receive Date: 20120416
  Receipt Date: 20120402
  Transmission Date: 20120825
  Serious: Yes (Other)
  Sender: FDA-Public Use
  Company Number: US-SHIONOGI, INC-2012000099

PATIENT

DRUGS (3)
  1. FOCALIN [Concomitant]
     Dosage: 5 MG, QD AT 4:00 PM
  2. KAPVAY [Suspect]
     Dosage: 0.2 MG BID (0.2 MG IN THE MORNING AND 0.2 MG IN THE EVENING)
     Dates: start: 20111212
  3. FOCALIN XR [Concomitant]
     Indication: ATTENTION DEFICIT/HYPERACTIVITY DISORDER
     Dosage: 20 MG, BID (ONE Q AM AND AT 1:00 PM)
     Dates: start: 20090601

REACTIONS (1)
  - ATRIOVENTRICULAR BLOCK FIRST DEGREE [None]
